FAERS Safety Report 10078383 (Version 1)
Quarter: 2014Q2

REPORT INFORMATION
  Report Type: Report from Study
  Country: US (occurrence: US)
  Receive Date: 20140415
  Receipt Date: 20140415
  Transmission Date: 20141212
  Serious: Yes (Other)
  Sender: FDA-Public Use
  Company Number: US-ALEXION PHARMACEUTICALS INC.-A200800526

PATIENT
  Sex: Female

DRUGS (3)
  1. SOLIRIS [Suspect]
     Indication: PAROXYSMAL NOCTURNAL HAEMOGLOBINURIA
     Dosage: UNK
     Route: 042
  2. NEUPOGEN [Concomitant]
     Indication: APLASTIC ANAEMIA
     Dosage: UNK
     Route: 058
  3. ARANESP [Concomitant]
     Indication: APLASTIC ANAEMIA
     Dosage: UNK
     Route: 058

REACTIONS (3)
  - Aplastic anaemia [Unknown]
  - Blood creatinine increased [Unknown]
  - Jaundice [Unknown]
